FAERS Safety Report 4433176-0 (Version None)
Quarter: 2004Q3

REPORT INFORMATION
  Report Type: 
  Country: None (occurrence: None)
  Receive Date: 20040823
  Receipt Date: 20040810
  Transmission Date: 20050211
  Serious: Yes (Life-Threatening, Hospitalization, Congenital Anomaly, Other)
  Sender: FDA-Public Use
  Company Number: 2004054890

PATIENT
  Age: 1 Day
  Sex: Male
  Weight: 1.4424 kg

DRUGS (1)
  1. NEURONTIN [Suspect]
     Indication: EPILEPSY
     Dosage: 300 MG, PLACENTAL
     Route: 064

REACTIONS (14)
  - ASPIRATION [None]
  - CONGENITAL ATRIAL SEPTAL DEFECT [None]
  - CONGENITAL VENTRICULAR SEPTAL DEFECT [None]
  - DRUG EXPOSURE DURING PREGNANCY [None]
  - FEEDING PROBLEM IN NEWBORN [None]
  - GASTROOESOPHAGEAL REFLUX DISEASE [None]
  - HEPATIC FAILURE [None]
  - NEONATAL CARDIAC FAILURE [None]
  - NEONATAL DISORDER [None]
  - NEONATAL RESPIRATORY DISTRESS SYNDROME [None]
  - PREMATURE BABY [None]
  - RESPIRATORY SYNCYTIAL VIRUS INFECTION [None]
  - THROMBOCYTOPENIA NEONATAL [None]
  - TRACHEAL DISORDER [None]
